FAERS Safety Report 4762452-7 (Version None)
Quarter: 2005Q3

REPORT INFORMATION
  Report Type: 
  Country: None (occurrence: None)
  Receive Date: 20050907
  Receipt Date: 20050823
  Transmission Date: 20060218
  Serious: Yes (Life-Threatening, Hospitalization)
  Sender: FDA-Public Use
  Company Number: PHRM2005FR02316

PATIENT
  Age: 47 Year
  Sex: Male

DRUGS (1)
  1. BRIAZIDE [Suspect]
     Indication: HYPERTENSION
     Dosage: 1 DF, QD
     Route: 048
     Dates: end: 20050321

REACTIONS (8)
  - ASCITES [None]
  - BLOOD CREATININE INCREASED [None]
  - DIARRHOEA [None]
  - HEPATIC ENCEPHALOPATHY [None]
  - HYPERKALAEMIA [None]
  - LOCALISED OEDEMA [None]
  - OESOPHAGITIS ULCERATIVE [None]
  - RENAL FAILURE ACUTE [None]
